FAERS Safety Report 5100903-9 (Version None)
Quarter: 2006Q3

REPORT INFORMATION
  Report Type: 
  Country: None (occurrence: None)
  Receive Date: 20060731
  Receipt Date: 20060614
  Transmission Date: 20061208
  Serious: No
  Sender: FDA-Public Use
  Company Number: 2006PV015644

PATIENT
  Age: 53 Year
  Sex: Male
  Weight: 81.1939 kg

DRUGS (3)
  1. BYETTA [Suspect]
     Indication: DIABETES MELLITUS NON-INSULIN-DEPENDENT
     Dosage: 5 MCG;BID;SC
     Route: 058
     Dates: start: 20060301
  2. LIPITOR [Concomitant]
  3. ZETIA [Concomitant]

REACTIONS (8)
  - BLOOD CHOLESTEROL DECREASED [None]
  - CHEST DISCOMFORT [None]
  - CHILLS [None]
  - DYSPEPSIA [None]
  - INJECTION SITE BRUISING [None]
  - INJECTION SITE PAIN [None]
  - NAUSEA [None]
  - WEIGHT DECREASED [None]
